FAERS Safety Report 10025545 (Version 1)
Quarter: 2014Q1

REPORT INFORMATION
  Report Type: Spontaneous
  Country: US (occurrence: US)
  Receive Date: 20140320
  Receipt Date: 20140320
  Transmission Date: 20141002
  Serious: Yes (Hospitalization)
  Sender: FDA-Public Use
  Company Number: US-PFIZER INC-2014079752

PATIENT
  Age: 56 Year
  Sex: Male

DRUGS (1)
  1. RAPAMUNE [Suspect]
     Indication: LUNG TRANSPLANT
     Dosage: 1 MG, UNK
     Dates: start: 20110516

REACTIONS (2)
  - Dyspnoea [Unknown]
  - Off label use [Not Recovered/Not Resolved]
